FAERS Safety Report 14014387 (Version 1)
Quarter: 2017Q3

REPORT INFORMATION
  Report Type: Spontaneous
  Country: US (occurrence: US)
  Receive Date: 20170926
  Receipt Date: 20170926
  Transmission Date: 20171128
  Serious: No
  Sender: FDA-Public Use
  Company Number: None

PATIENT
  Age: 61 Year
  Sex: Female
  Weight: 69.75 kg

DRUGS (3)
  1. ALLEGRA-D 24 HOUR [Suspect]
     Active Substance: FEXOFENADINE HYDROCHLORIDE\PSEUDOEPHEDRINE HYDROCHLORIDE
     Indication: HYPERSENSITIVITY
     Dates: start: 19990101, end: 20161227
  2. DYMISTA [Concomitant]
     Active Substance: AZELASTINE HYDROCHLORIDE\FLUTICASONE PROPIONATE
  3. COFFEE [Concomitant]
     Active Substance: ARABICA COFFEE BEAN\COFFEE BEAN

REACTIONS (2)
  - Unevaluable event [None]
  - Gastrointestinal melanosis [None]

NARRATIVE: CASE EVENT DATE: 20161227
